FAERS Safety Report 8504336-4 (Version None)
Quarter: 2012Q3

REPORT INFORMATION
  Report Type: 
  Country: None (occurrence: None)
  Receive Date: 20120711
  Receipt Date: 20120706
  Transmission Date: 20120928
  Serious: Yes (Other)
  Sender: FDA-Public Use
  Company Number: PHHY2012US058498

PATIENT
  Age: 87 Year
  Sex: Male

DRUGS (1)
  1. PREDNISONE [Suspect]
     Dosage: 60 MG, DAILY
     Route: 048

REACTIONS (2)
  - VARICELLA VIRUS TEST POSITIVE [None]
  - VISUAL ACUITY REDUCED [None]
